FAERS Safety Report 7123947-4 (Version None)
Quarter: 2010Q4

REPORT INFORMATION
  Report Type: 
  Country: None (occurrence: None)
  Receive Date: 20101126
  Receipt Date: 20101122
  Transmission Date: 20110411
  Serious: No
  Sender: FDA-Public Use
  Company Number: US-PFIZER INC-2010155069

PATIENT
  Sex: Male
  Weight: 102 kg

DRUGS (3)
  1. VIAGRA [Suspect]
     Indication: ERECTILE DYSFUNCTION
     Dosage: 50 MG, AS NEEDED
     Route: 048
     Dates: start: 20100501
  2. DIOVANE [Concomitant]
     Indication: HYPERTENSION
     Dosage: 80 MG, UNK
  3. GLIPIZIDE [Concomitant]
     Indication: DIABETES MELLITUS
     Dosage: 5 MG, UNK

REACTIONS (2)
  - DRUG INEFFECTIVE [None]
  - PRODUCT TASTE ABNORMAL [None]
